FAERS Safety Report 19269192 (Version 1)
Quarter: 2021Q2

REPORT INFORMATION
  Report Type: Spontaneous
  Country: US (occurrence: US)
  Receive Date: 20210518
  Receipt Date: 20210518
  Transmission Date: 20210717
  Serious: Yes (Other)
  Sender: FDA-Public Use
  Company Number: US-GLAXOSMITHKLINE-US2021101432

PATIENT
  Sex: Male

DRUGS (2)
  1. PREDNISONE. [Concomitant]
     Active Substance: PREDNISONE
     Indication: PRODUCT USED FOR UNKNOWN INDICATION
     Dosage: UNK
  2. BENLYSTA [Suspect]
     Active Substance: BELIMUMAB
     Indication: ARTHRITIS
     Dosage: UNK

REACTIONS (11)
  - Productive cough [Unknown]
  - Plasma cell myeloma [Unknown]
  - Pain [Unknown]
  - Product use in unapproved indication [Unknown]
  - Arthralgia [Unknown]
  - Sepsis [Unknown]
  - Red blood cell sedimentation rate increased [Unknown]
  - Drug ineffective for unapproved indication [Unknown]
  - Rash pustular [Unknown]
  - C-reactive protein increased [Unknown]
  - Furuncle [Unknown]

NARRATIVE: CASE EVENT DATE: 2020
